FAERS Safety Report 5792097-1 (Version None)
Quarter: 2008Q2

REPORT INFORMATION
  Report Type: 
  Country: None (occurrence: None)
  Receive Date: 20080623
  Receipt Date: 20080610
  Transmission Date: 20081010
  Serious: Yes (Hospitalization)
  Sender: FDA-Public Use
  Company Number: 2007BI010670

PATIENT
  Age: 10 Year
  Sex: Female

DRUGS (9)
  1. AVONEX [Suspect]
     Indication: RELAPSING-REMITTING MULTIPLE SCLEROSIS
     Dosage: 15 UG;QW;IM
     Route: 030
     Dates: start: 20070307
  2. DEPAKENE [Concomitant]
  3. ALFAROL [Concomitant]
  4. BLOSTAR M [Concomitant]
  5. LAXOBERON [Concomitant]
  6. PREDNISOLONE [Concomitant]
  7. SOLU-MEDROL [Concomitant]
  8. BRUFEN [Concomitant]
  9. FREEZE-DRIED LIVE ATTENUATED MEASLES AND RUBELLA COMBINED VACCINE [Concomitant]

REACTIONS (7)
  - DRUG INEFFECTIVE [None]
  - EXTENSOR PLANTAR RESPONSE [None]
  - GASTROENTERITIS [None]
  - HYPERREFLEXIA [None]
  - MULTIPLE SCLEROSIS RELAPSE [None]
  - NASAL CONGESTION [None]
  - UPPER RESPIRATORY TRACT INFLAMMATION [None]
